FAERS Safety Report 22296533 (Version 1)
Quarter: 2023Q2

REPORT INFORMATION
  Report Type: Spontaneous
  Country: PT (occurrence: PT)
  Receive Date: 20230508
  Receipt Date: 20230508
  Transmission Date: 20230722
  Serious: Yes (Other)
  Sender: FDA-Public Use
  Company Number: None

PATIENT
  Sex: Female
  Weight: 60 kg

DRUGS (17)
  1. GILOTRIF [Suspect]
     Active Substance: AFATINIB
     Indication: Lung neoplasm malignant
     Route: 048
     Dates: start: 20230321, end: 20230406
  2. GILOTRIF [Suspect]
     Active Substance: AFATINIB
     Route: 048
  3. AMIODARONE [Suspect]
     Active Substance: AMIODARONE
     Indication: Cardiovascular disorder
     Route: 048
  4. Apixabano [Concomitant]
     Indication: Product used for unknown indication
  5. AMLODIPINE [Concomitant]
     Active Substance: AMLODIPINE BESYLATE
     Indication: Product used for unknown indication
  6. PERINDOPRIL [Concomitant]
     Active Substance: PERINDOPRIL
     Indication: Product used for unknown indication
  7. ONDANSETRON [Concomitant]
     Active Substance: ONDANSETRON
     Indication: Product used for unknown indication
     Dosage: 8 MG IN SOS MAXIMUM EVERY 8H (8H/16H/24H
  8. CLONAZEPAM [Concomitant]
     Active Substance: CLONAZEPAM
     Indication: Product used for unknown indication
  9. Megestrol Generis [Concomitant]
     Indication: Product used for unknown indication
     Dosage: 1 TABLET BEFORE LUNCH + 1 TABLET BEFORE DINNER
     Route: 048
  10. OMEPRAZOLE [Concomitant]
     Active Substance: OMEPRAZOLE
     Indication: Product used for unknown indication
     Dosage: 1 TABLET ON AN EMPTY STOMACH BEFORE DEXAMETHASONE
     Route: 048
  11. MORPHINE HYDROCHLORIDE [Concomitant]
     Active Substance: MORPHINE HYDROCHLORIDE
     Indication: Product used for unknown indication
  12. ?cido Ibandr?nico [Concomitant]
     Indication: Product used for unknown indication
     Dosage: 1 TABLET ON AN EMPTY STOMACH WITH A LARGE GLASS OF WATER, SITTING POSITION FOR 1 HOUR
  13. DEXAMETHASONE [Concomitant]
     Active Substance: DEXAMETHASONE
     Indication: Product used for unknown indication
  14. FENTANYL [Concomitant]
     Active Substance: FENTANYL
     Indication: Product used for unknown indication
     Dosage: 1 PATCH EVERY 3 DAYS
  15. TRAZODONE HYDROCHLORIDE [Concomitant]
     Active Substance: TRAZODONE HYDROCHLORIDE
     Indication: Product used for unknown indication
     Dosage: 1/2TABLET BEFORE BEDTIME
  16. Picossulfato de s?dio [Concomitant]
     Indication: Product used for unknown indication
     Dosage: ON SOS (IF CONSTIPATION }48H) - 10 DROPS AT NIGHT
  17. MIRTAZAPINE [Concomitant]
     Active Substance: MIRTAZAPINE
     Indication: Product used for unknown indication
     Dosage: 2 TABLETS BEFORE BEDTIME

REACTIONS (4)
  - Diarrhoea [Recovered/Resolved]
  - Nausea [Recovered/Resolved]
  - Vomiting [Recovered/Resolved]
  - Drug interaction [Unknown]

NARRATIVE: CASE EVENT DATE: 20230331
